FAERS Safety Report 7780190-3 (Version None)
Quarter: 2011Q3

REPORT INFORMATION
  Report Type: 
  Country: None (occurrence: None)
  Receive Date: 20110927
  Receipt Date: 20110927
  Transmission Date: 20111222
  Serious: Yes (Death)
  Sender: FDA-Public Use
  Company Number: None

PATIENT
  Age: 64 Year
  Sex: Female
  Weight: 71.8 kg

DRUGS (1)
  1. MEPERIDINE HCL [Suspect]
     Indication: CHILLS
     Dosage: 25MG
     Route: 042

REACTIONS (13)
  - ACUTE RESPIRATORY DISTRESS SYNDROME [None]
  - CONTRAST MEDIA REACTION [None]
  - MULTI-ORGAN FAILURE [None]
  - IMMOBILE [None]
  - MYOCARDIAL INFARCTION [None]
  - PNEUMONIA ASPIRATION [None]
  - RHABDOMYOLYSIS [None]
  - PANCREATITIS [None]
  - SEPSIS [None]
  - NEPHROPATHY [None]
  - ANAPHYLACTIC REACTION [None]
  - RENAL FAILURE ACUTE [None]
  - DISSEMINATED INTRAVASCULAR COAGULATION [None]
